FAERS Safety Report 19972844 (Version 1)
Quarter: 2021Q4

REPORT INFORMATION
  Report Type: Spontaneous
  Country: US (occurrence: US)
  Receive Date: 20211018
  Receipt Date: 20211018
  Transmission Date: 20220304
  Serious: Yes (Hospitalization)
  Sender: FDA-Public Use
  Company Number: None

PATIENT
  Age: 8 Month
  Sex: Female

DRUGS (1)
  1. VIGABATRIN [Suspect]
     Active Substance: VIGABATRIN
     Indication: Muscle spasms
     Route: 048
     Dates: start: 20210524

REACTIONS (2)
  - Gastrooesophageal reflux disease [None]
  - Pneumonia aspiration [None]

NARRATIVE: CASE EVENT DATE: 20210608
